FAERS Safety Report 8937541 (Version 1)
Quarter: 2012Q4

REPORT INFORMATION
  Report Type: Spontaneous
  Country: US (occurrence: None)
  Receive Date: 20121128
  Receipt Date: 20121128
  Transmission Date: 20130627
  Serious: Yes (Life-Threatening, Hospitalization)
  Sender: FDA-Public Use
  Company Number: None

PATIENT
  Age: 82 Year
  Sex: Female
  Weight: 79 kg

DRUGS (2)
  1. AMIODARONE [Suspect]
     Indication: ATRIAL FIBRILLATION
     Route: 048
  2. DRONEDARONE [Suspect]
     Indication: ATRIAL FIBRILLATION
     Route: 048

REACTIONS (13)
  - Arthralgia [None]
  - Weight bearing difficulty [None]
  - Urinary tract infection [None]
  - Morganella test positive [None]
  - Enterococcus test positive [None]
  - Lumbar spinal stenosis [None]
  - Hypoxia [None]
  - Hypotension [None]
  - Pulmonary toxicity [None]
  - Respiratory disorder [None]
  - Condition aggravated [None]
  - Pneumonia [None]
  - Unevaluable event [None]
